FAERS Safety Report 10545543 (Version 2)
Quarter: 2014Q4

REPORT INFORMATION
  Report Type: Spontaneous
  Country: US (occurrence: US)
  Receive Date: 20141027
  Receipt Date: 20141027
  Transmission Date: 20150529
  Serious: No
  Sender: FDA-Public Use
  Company Number: US-ASTELLAS-2014US008341

PATIENT
  Age: 73 Year
  Sex: Female

DRUGS (3)
  1. LEXISCAN [Suspect]
     Active Substance: REGADENOSON
     Indication: ANGINA PECTORIS
     Dosage: 400 MCG/5ML, UNKNOWN FREQ.
     Route: 065
     Dates: start: 20140710, end: 20140710
  2. LEXISCAN [Suspect]
     Active Substance: REGADENOSON
     Indication: HYPERSENSITIVITY
  3. LEXISCAN [Suspect]
     Active Substance: REGADENOSON
     Indication: PERIPHERAL ARTERIAL OCCLUSIVE DISEASE

REACTIONS (5)
  - Fatigue [Unknown]
  - Product use issue [Unknown]
  - Malaise [Unknown]
  - Dizziness [Unknown]
  - Hyperhidrosis [Unknown]

NARRATIVE: CASE EVENT DATE: 20140710
